FAERS Safety Report 12090358 (Version 1)
Quarter: 2016Q1

REPORT INFORMATION
  Report Type: Spontaneous
  Country: US (occurrence: US)
  Receive Date: 20160218
  Receipt Date: 20160218
  Transmission Date: 20160526
  Serious: Yes (Hospitalization)
  Sender: FDA-Public Use
  Company Number: US-JNJFOC-20160212569

PATIENT
  Sex: Male
  Weight: 104.33 kg

DRUGS (2)
  1. XARELTO [Suspect]
     Active Substance: RIVAROXABAN
     Indication: THROMBOSIS
     Route: 048
     Dates: start: 20160127
  2. VALIUM [Concomitant]
     Active Substance: DIAZEPAM
     Indication: HEART RATE
     Route: 065

REACTIONS (5)
  - Weight increased [Unknown]
  - Anxiety [Not Recovered/Not Resolved]
  - Atrial fibrillation [Unknown]
  - Hypertension [Unknown]
  - Arthritis [Not Recovered/Not Resolved]

NARRATIVE: CASE EVENT DATE: 2016
